FAERS Safety Report 8614080-0 (Version None)
Quarter: 2012Q3

REPORT INFORMATION
  Report Type: 
  Country: None (occurrence: None)
  Receive Date: 20120823
  Receipt Date: 20120808
  Transmission Date: 20120928
  Serious: Yes (Other)
  Sender: FDA-Public Use
  Company Number: ES-009507513-1208ESP004261

PATIENT

DRUGS (1)
  1. MAXALT [Suspect]
     Indication: MIGRAINE
     Dosage: UNK
     Route: 048
     Dates: end: 20120806

REACTIONS (2)
  - TONGUE PRURITUS [None]
  - SWOLLEN TONGUE [None]
